FAERS Safety Report 5976663-6 (Version None)
Quarter: 2008Q4

REPORT INFORMATION
  Report Type: 
  Country: None (occurrence: None)
  Receive Date: 20081203
  Receipt Date: 20081202
  Transmission Date: 20090506
  Serious: Yes (Other)
  Sender: FDA-Public Use
  Company Number: US-JNJFOC-20080903676

PATIENT
  Sex: Female
  Weight: 45.36 kg

DRUGS (2)
  1. DURAGESIC-100 [Suspect]
  2. DURAGESIC-100 [Suspect]
     Indication: PAIN
     Dosage: 100 MCG/HR X 2

REACTIONS (3)
  - DRUG ABUSE [None]
  - DRUG DIVERSION [None]
  - INAPPROPRIATE SCHEDULE OF DRUG ADMINISTRATION [None]
